FAERS Safety Report 4313664-8 (Version None)
Quarter: 2004Q1

REPORT INFORMATION
  Report Type: 
  Country: None (occurrence: None)
  Receive Date: 20040308
  Receipt Date: 20030917
  Transmission Date: 20041129
  Serious: Yes (Other)
  Sender: FDA-Public Use
  Company Number: PHBS2003JP10116

PATIENT
  Age: 68 Year
  Sex: Female

DRUGS (10)
  1. DOPS [Concomitant]
     Dosage: 500 MG/D
     Route: 048
  2. MADOPAR [Concomitant]
     Route: 048
  3. PREDNISOLONE [Concomitant]
     Dosage: 5 MG/D
     Route: 048
  4. EXCEGRAN [Concomitant]
     Dosage: 50 MG/D
     Route: 048
     Dates: start: 20020208
  5. FERROMIA [Concomitant]
     Dosage: 100 MG/D
     Route: 048
     Dates: start: 20020123
  6. SELBEX [Concomitant]
     Dosage: 1.5 G/D
     Route: 048
     Dates: start: 20020110
  7. SYMMETREL [Concomitant]
     Dosage: 150 MG/D
     Route: 048
  8. MYSLEE [Concomitant]
     Dosage: 10 MG/D
     Route: 048
     Dates: start: 20020212, end: 20020218
  9. GLEEVEC [Suspect]
     Indication: CHRONIC MYELOID LEUKAEMIA
     Dosage: 300 MG/D
     Route: 048
     Dates: start: 20020114
  10. CABASER [Suspect]
     Indication: PARKINSON'S DISEASE
     Dosage: 3 MG/D
     Route: 048
     Dates: start: 20010308

REACTIONS (3)
  - DRUG INTERACTION [None]
  - DRUG LEVEL INCREASED [None]
  - HALLUCINATION, VISUAL [None]
